FAERS Safety Report 25071994 (Version 4)
Quarter: 2025Q3

REPORT INFORMATION
  Report Type: Report from Study
  Country: JP (occurrence: JP)
  Receive Date: 20250313
  Receipt Date: 20250722
  Transmission Date: 20251020
  Serious: Yes (Hospitalization)
  Sender: ROCHE
  Company Number: JP-CHUGAI-2025007321

PATIENT
  Age: 75 Year
  Sex: Female
  Weight: 62 kg

DRUGS (11)
  1. PIASKY [Suspect]
     Active Substance: CROVALIMAB-AKKZ
     Indication: Paroxysmal nocturnal haemoglobinuria
     Route: 058
     Dates: start: 20250218, end: 20250218
  2. PIASKY [Suspect]
     Active Substance: CROVALIMAB-AKKZ
     Route: 058
     Dates: start: 20250219, end: 20250225
  3. ENTRESTO [Concomitant]
     Active Substance: SACUBITRIL\VALSARTAN
  4. ASPIRIN [Concomitant]
     Active Substance: ASPIRIN
  5. PRASUGREL HYDROCHLORIDE [Concomitant]
     Active Substance: PRASUGREL HYDROCHLORIDE
  6. AMLODIPINE BESYLATE [Concomitant]
     Active Substance: AMLODIPINE BESYLATE
  7. CARVEDILOL [Concomitant]
     Active Substance: CARVEDILOL
  8. JANUVIA [Concomitant]
     Active Substance: SITAGLIPTIN PHOSPHATE
  9. VONOPRAZAN FUMARATE [Concomitant]
     Active Substance: VONOPRAZAN FUMARATE
  10. FEBUXOSTAT [Concomitant]
     Active Substance: FEBUXOSTAT
  11. ROSUVASTATIN FELDSENF [Concomitant]

REACTIONS (5)
  - Pyrexia [Recovering/Resolving]
  - Acute kidney injury [Not Recovered/Not Resolved]
  - Vasculitis [Recovered/Resolved]
  - Dehydration [Recovering/Resolving]
  - Vascular purpura [Recovered/Resolved]

NARRATIVE: CASE EVENT DATE: 20250228
